FAERS Safety Report 4909101-2 (Version None)
Quarter: 2006Q1

REPORT INFORMATION
  Report Type: 
  Country: None (occurrence: None)
  Receive Date: 20060209
  Receipt Date: 20060209
  Transmission Date: 20060701
  Serious: No
  Sender: FDA-Public Use
  Company Number: None

PATIENT
  Age: 47 Year
  Sex: Male
  Weight: 108.8633 kg

DRUGS (1)
  1. ANDROGEL GEL 1% SOLVAY [Suspect]
     Indication: BLOOD TESTOSTERONE
     Dosage: TWO 5 GM PACKETS DAILY TOP
     Route: 061
     Dates: start: 20050715, end: 20060208

REACTIONS (2)
  - BLOOD TESTOSTERONE DECREASED [None]
  - PHARMACEUTICAL PRODUCT COMPLAINT [None]
